FAERS Safety Report 22083512 (Version 1)
Quarter: 2023Q1

REPORT INFORMATION
  Report Type: Spontaneous
  Country: US (occurrence: US)
  Receive Date: 20230310
  Receipt Date: 20230310
  Transmission Date: 20230417
  Serious: Yes (Other)
  Sender: FDA-Public Use
  Company Number: US-MYLANLABS-2023M1024189

PATIENT
  Age: 13 Year
  Sex: Female

DRUGS (7)
  1. WARFARIN [Interacting]
     Active Substance: WARFARIN
     Indication: Anticoagulant therapy
     Dosage: INITIAL DOSE NOT STATED
     Route: 048
  2. WARFARIN [Interacting]
     Active Substance: WARFARIN
     Dosage: 49 MILLIGRAM, QW
     Route: 048
  3. WARFARIN [Interacting]
     Active Substance: WARFARIN
     Dosage: 35 MILLIGRAM, QW
     Route: 048
  4. NORETHINDRONE [Interacting]
     Active Substance: NORETHINDRONE
     Indication: Heavy menstrual bleeding
     Dosage: 10 MILLIGRAM, QD
     Route: 048
  5. NORETHINDRONE [Interacting]
     Active Substance: NORETHINDRONE
     Dosage: 10 MILLIGRAM, QID (LOADING DOSE 4 TIMES DAILY)
     Route: 048
  6. NORETHINDRONE [Interacting]
     Active Substance: NORETHINDRONE
     Dosage: 15 MILLIGRAM, QD (MAINTENANCE DOSE)
     Route: 048
  7. ASPIRIN [Concomitant]
     Active Substance: ASPIRIN
     Indication: Product used for unknown indication
     Dosage: LOW-DOSE
     Route: 065

REACTIONS (4)
  - Heavy menstrual bleeding [Recovered/Resolved]
  - International normalised ratio increased [Recovered/Resolved]
  - Drug interaction [Recovered/Resolved]
  - Intermenstrual bleeding [Unknown]
